FAERS Safety Report 7465842-7 (Version None)
Quarter: 2011Q2

REPORT INFORMATION
  Report Type: 
  Country: None (occurrence: None)
  Receive Date: 20110509
  Receipt Date: 20100409
  Transmission Date: 20111010
  Serious: No
  Sender: FDA-Public Use
  Company Number: US-ALEXION-A201000412

PATIENT
  Sex: Male

DRUGS (2)
  1. SOLIRIS [Suspect]
     Dosage: 1200 MG, Q14D
     Route: 042
  2. SOLIRIS [Suspect]
     Dosage: UNK

REACTIONS (1)
  - PLATELET COUNT DECREASED [None]
